FAERS Safety Report 4940142-5 (Version None)
Quarter: 2006Q1

REPORT INFORMATION
  Report Type: 
  Country: None (occurrence: None)
  Receive Date: 20060310
  Receipt Date: 20060302
  Transmission Date: 20060701
  Serious: Yes (Hospitalization)
  Sender: FDA-Public Use
  Company Number: NL-ROCHE-438624

PATIENT
  Age: 48 Year
  Sex: Male

DRUGS (3)
  1. CAPECITABINE [Suspect]
     Dosage: ORALLY B.I.D. ON DAY 1-14 EVERY THREE WEEKS. FREQUENCY AS PER PROTOCOL.
     Route: 048
     Dates: start: 20051214
  2. BEVACIZUMAB [Suspect]
     Dosage: FREQUENCY AS PER PROTOCOL.
     Route: 042
     Dates: start: 20051214
  3. OXALIPLATIN [Suspect]
     Dosage: FREQUENCY AS PER PROTOCOL.
     Route: 042
     Dates: start: 20051214

REACTIONS (2)
  - BRAIN OEDEMA [None]
  - EPILEPSY [None]
